FAERS Safety Report 5199482-X (Version None)
Quarter: 2006Q4

REPORT INFORMATION
  Report Type: 
  Country: None (occurrence: None)
  Receive Date: 20061229
  Receipt Date: 20061222
  Transmission Date: 20070319
  Serious: Yes (Death, Hospitalization)
  Sender: FDA-Public Use
  Company Number: MEDI-0005212

PATIENT
  Age: 77 Year
  Sex: Female
  Weight: 61.6892 kg

DRUGS (2)
  1. ETHYOL [Suspect]
     Dosage: 500 MG, 5 IN 5 D, SUBCUTANEOUS
     Route: 058
     Dates: start: 20060419, end: 20060510
  2. ETHYOL [Suspect]
     Dosage: 500 MG, 5 IN 5 D, SUBCUTANEOUS
     Route: 058
     Dates: start: 20060511, end: 20060518

REACTIONS (12)
  - ADVERSE DRUG REACTION [None]
  - BLADDER CANCER [None]
  - CHILLS [None]
  - FEELING COLD [None]
  - METASTASES TO LUNG [None]
  - MIOSIS [None]
  - NAUSEA [None]
  - PULSE ABSENT [None]
  - PUPILLARY REFLEX IMPAIRED [None]
  - PYREXIA [None]
  - RESPIRATORY ARREST [None]
  - UNRESPONSIVE TO STIMULI [None]
